FAERS Safety Report 14636592 (Version 1)
Quarter: 2018Q1

REPORT INFORMATION
  Report Type: Spontaneous
  Country: AU (occurrence: AU)
  Receive Date: 20180314
  Receipt Date: 20180314
  Transmission Date: 20180509
  Serious: Yes (Hospitalization)
  Sender: FDA-Public Use
  Company Number: AU-SA-2017SA266835

PATIENT
  Age: 9 Year
  Sex: Female

DRUGS (1)
  1. TELFAST ORAL LIQUID [Suspect]
     Active Substance: FEXOFENADINE HYDROCHLORIDE
     Indication: HYPERSENSITIVITY
     Route: 048
     Dates: start: 20171216, end: 20171222

REACTIONS (6)
  - Vomiting [Recovered/Resolved]
  - Abdominal pain [None]
  - Gastroenteritis [None]
  - Abdominal pain [Recovered/Resolved]
  - Product quality issue [None]
  - Product storage error [None]
